FAERS Safety Report 5203531-X (Version None)
Quarter: 2007Q1

REPORT INFORMATION
  Report Type: 
  Country: None (occurrence: None)
  Receive Date: 20070105
  Receipt Date: 20061228
  Transmission Date: 20070707
  Serious: Yes (Hospitalization, Other)
  Sender: FDA-Public Use
  Company Number: HQWYE098202JAN07

PATIENT
  Age: 47 Year
  Sex: Male

DRUGS (1)
  1. RAPAMUNE [Suspect]
     Indication: PROPHYLAXIS AGAINST TRANSPLANT REJECTION
     Dosage: 3 MG 1X PER 1 DAY
     Route: 048
     Dates: start: 20061123

REACTIONS (3)
  - DRUG INEFFECTIVE [None]
  - DRUG LEVEL DECREASED [None]
  - LIVER TRANSPLANT REJECTION [None]
